FAERS Safety Report 15376417 (Version 1)
Quarter: 2018Q3

REPORT INFORMATION
  Report Type: Spontaneous
  Country: GB (occurrence: GB)
  Receive Date: 20180912
  Receipt Date: 20180912
  Transmission Date: 20181010
  Serious: Yes (Disabling)
  Sender: FDA-Public Use
  Company Number: PHHY2018GB096713

PATIENT
  Age: 29 Year
  Sex: Female
  Weight: 49 kg

DRUGS (1)
  1. CLARITHROMYCIN. [Suspect]
     Active Substance: CLARITHROMYCIN
     Indication: TONSILLITIS
     Dosage: 500 MG, QD
     Route: 048
     Dates: start: 20180821, end: 20180823

REACTIONS (4)
  - Muscle spasms [Not Recovered/Not Resolved]
  - Urine output decreased [Unknown]
  - Myalgia [Unknown]
  - Renal pain [Not Recovered/Not Resolved]

NARRATIVE: CASE EVENT DATE: 20180821
